FAERS Safety Report 6295677-2 (Version None)
Quarter: 2009Q4

REPORT INFORMATION
  Report Type: 
  Country: None (occurrence: None)
  Receive Date: 20090803
  Receipt Date: 20090803
  Transmission Date: 20100525
  Serious: No
  Sender: FDA-Public Use
  Company Number: None

PATIENT
  Age: 67 Year
  Sex: Male

DRUGS (15)
  1. DAPSONE [Suspect]
     Dates: start: 20070630, end: 20070717
  2. VORICONAZOLE [Suspect]
     Dates: start: 20070626, end: 20070717
  3. BACTRIM [Concomitant]
  4. DIFLUCAN [Concomitant]
  5. FOLIC ACID [Concomitant]
  6. LEVAQUIN [Concomitant]
  7. MAGNESIUM OXIDE [Concomitant]
  8. PLAQUENIL [Concomitant]
  9. PREDNISONE [Concomitant]
  10. PROGRAF [Concomitant]
  11. TRIAMCINOLONE [Concomitant]
  12. NORVASC [Concomitant]
  13. NEXIUM [Concomitant]
  14. VANCOMYCIN [Concomitant]
  15. VALACYCLOVIR [Concomitant]

REACTIONS (14)
  - DRUG TOXICITY [None]
  - ENTEROCOCCAL INFECTION [None]
  - GENERAL PHYSICAL HEALTH DETERIORATION [None]
  - GRAFT VERSUS HOST DISEASE [None]
  - HAEMORRHAGE [None]
  - HEPATIC FAILURE [None]
  - HEPATIC NECROSIS [None]
  - HEPATIC SIDEROSIS [None]
  - INFECTION [None]
  - LIVER INJURY [None]
  - MENTAL STATUS CHANGES [None]
  - PNEUMONIA NECROTISING [None]
  - STAPHYLOCOCCAL INFECTION [None]
  - THROMBOTIC THROMBOCYTOPENIC PURPURA [None]
